FAERS Safety Report 7437504-3 (Version None)
Quarter: 2011Q2

REPORT INFORMATION
  Report Type: 
  Country: None (occurrence: None)
  Receive Date: 20110426
  Receipt Date: 20110426
  Transmission Date: 20111010
  Serious: Yes (Congenital Anomaly)
  Sender: FDA-Public Use
  Company Number: PHHY2011GB32065

PATIENT

DRUGS (6)
  1. LAMOTRIGINE [Concomitant]
     Dosage: 400 MG, QD, MATERNAL DOSE
     Route: 064
  2. DIHYDROCODEINE BITARTRATE INJ [Concomitant]
     Dosage: UNK UKN, UNK
     Route: 064
  3. TERBUTALINE [Concomitant]
     Dosage: UNK UKN, UNK
     Route: 064
  4. BUDESONIDE [Concomitant]
     Dosage: 400 MG, QD, MATERNAL DOSE
  5. TOPIRAMATE [Suspect]
     Dosage: 450 MG APPROXIMATELY, MATERNAL DOSE
     Route: 064
  6. FOLIC ACID [Concomitant]
     Dosage: UNK UKN, UNK
     Route: 064

REACTIONS (2)
  - POLYDACTYLY [None]
  - DRUG EXPOSURE DURING PREGNANCY [None]
